FAERS Safety Report 4427987-5 (Version None)
Quarter: 2004Q3

REPORT INFORMATION
  Report Type: 
  Country: None (occurrence: None)
  Receive Date: 20040726
  Receipt Date: 20040601
  Transmission Date: 20050211
  Serious: No
  Sender: FDA-Public Use
  Company Number: USA030640482

PATIENT
  Age: 76 Year
  Sex: Female
  Weight: 61 kg

DRUGS (3)
  1. FORTEO [Suspect]
     Indication: OSTEOPOROSIS
     Dosage: 20 UG DAY
     Dates: start: 20030601
  2. FOSAMAX [Concomitant]
  3. VICOPROFEN [Concomitant]

REACTIONS (9)
  - ASTHENIA [None]
  - CONSTIPATION [None]
  - FEELING ABNORMAL [None]
  - HYPERSOMNIA [None]
  - INJECTION SITE HAEMORRHAGE [None]
  - INJECTION SITE PAIN [None]
  - PAIN IN EXTREMITY [None]
  - SENSATION OF HEAVINESS [None]
  - SENSORY DISTURBANCE [None]
